FAERS Safety Report 9221992 (Version 1)
Quarter: 2013Q2

REPORT INFORMATION
  Report Type: Spontaneous
  Country: US (occurrence: None)
  Receive Date: 20130410
  Receipt Date: 20130410
  Transmission Date: 20140414
  Serious: Yes (Hospitalization)
  Sender: FDA-Public Use
  Company Number: None

PATIENT
  Age: 66 Year
  Sex: Male
  Weight: 55.2 kg

DRUGS (14)
  1. WARFARIN [Suspect]
     Indication: THROMBOSIS PROPHYLAXIS
     Dosage: 2.5 MG  DAILY  PO?POST OP (~ 5 DAYS)
     Route: 048
  2. WARFARIN [Suspect]
     Indication: POSTOPERATIVE CARE
     Dosage: 2.5 MG  DAILY  PO?POST OP (~ 5 DAYS)
     Route: 048
  3. MELOXICAM [Suspect]
     Indication: ARTHRITIS
     Dosage: 15MG DAILY PO?CHRONIC
     Route: 048
  4. ERTAPENEM [Concomitant]
  5. TUSSIONEX [Concomitant]
  6. VALIUM [Concomitant]
  7. VIT D [Concomitant]
  8. REMICADE [Concomitant]
  9. NOVOLOG [Concomitant]
  10. FLUTAMIDE [Concomitant]
  11. LEFLUNOMIDE [Concomitant]
  12. LISINOPRIL [Concomitant]
  13. FORTEO [Concomitant]
  14. TRAMADOL [Concomitant]

REACTIONS (2)
  - Procedural haemorrhage [None]
  - Vomiting [None]
